FAERS Safety Report 13081927 (Version 4)
Quarter: 2017Q1

REPORT INFORMATION
  Report Type: Spontaneous
  Country: US (occurrence: US)
  Receive Date: 20170103
  Receipt Date: 20170323
  Transmission Date: 20170428
  Serious: Yes (Death, Hospitalization)
  Sender: FDA-Public Use
  Company Number: US-PFIZER INC-2016580075

PATIENT
  Age: 70 Year
  Sex: Male
  Weight: 107 kg

DRUGS (11)
  1. SIMVASTATIN. [Concomitant]
     Active Substance: SIMVASTATIN
     Dosage: UNK
     Dates: end: 20170224
  2. LISINOPRIL. [Concomitant]
     Active Substance: LISINOPRIL
     Dosage: UNK
     Dates: end: 20161224
  3. TIMOLOL MALEATE. [Concomitant]
     Active Substance: TIMOLOL MALEATE
     Dosage: UNK
     Dates: end: 20170224
  4. COLCRYS [Concomitant]
     Active Substance: COLCHICINE
     Dosage: UNK
     Dates: end: 20170224
  5. ALLOPURINOL. [Concomitant]
     Active Substance: ALLOPURINOL
     Dosage: UNK
     Dates: end: 20170224
  6. VIAGRA [Concomitant]
     Active Substance: SILDENAFIL CITRATE
     Dosage: UNK
     Dates: end: 20161120
  7. SUTENT [Suspect]
     Active Substance: SUNITINIB MALATE
     Indication: RENAL CANCER METASTATIC
     Dosage: 50 MG, CYCLIC (28 DAYS ON AND 14 DAYS OFF )
     Dates: start: 20161210, end: 20161229
  8. XANAX [Concomitant]
     Active Substance: ALPRAZOLAM
     Dosage: UNK
     Dates: end: 20170224
  9. CELEXA [Concomitant]
     Active Substance: CITALOPRAM HYDROBROMIDE
     Dosage: UNK
     Dates: end: 20170224
  10. SUTENT [Suspect]
     Active Substance: SUNITINIB MALATE
     Dosage: 20 MG, 1X/DAY
     Dates: start: 20161210, end: 20161224
  11. METFORMIN [Concomitant]
     Active Substance: METFORMIN HYDROCHLORIDE
     Dosage: UNK
     Dates: end: 20170224

REACTIONS (14)
  - Muscular weakness [Unknown]
  - Hypotension [Recovering/Resolving]
  - Gingival disorder [Unknown]
  - Hypertension [Unknown]
  - Stomatitis [Not Recovered/Not Resolved]
  - Decreased appetite [Unknown]
  - Constipation [Unknown]
  - Nausea [Unknown]
  - Bowel movement irregularity [Unknown]
  - Fatigue [Not Recovered/Not Resolved]
  - Death [Fatal]
  - Rash [Unknown]
  - Blood glucose fluctuation [Unknown]
  - Feeling abnormal [Unknown]

NARRATIVE: CASE EVENT DATE: 20161223
